FAERS Safety Report 19607161 (Version 1)
Quarter: 2021Q3

REPORT INFORMATION
  Report Type: Spontaneous
  Country: JP (occurrence: JP)
  Receive Date: 20210726
  Receipt Date: 20210726
  Transmission Date: 20211014
  Serious: Yes (Other)
  Sender: FDA-Public Use
  Company Number: JP-SUN PHARMACEUTICAL INDUSTRIES LTD-2021RR-305055

PATIENT
  Age: 42 Year
  Sex: Male

DRUGS (8)
  1. FUROSEMIDE. [Suspect]
     Active Substance: FUROSEMIDE
     Indication: PROPHYLAXIS
     Dosage: UP TO 320MG
     Route: 065
  2. POTASSIUM MAGNESIUM CITRATE [Suspect]
     Active Substance: POTASSIUM MAGNESIUM CITRATE (4:1:2)
     Indication: PROPHYLAXIS
     Dosage: UNK
     Route: 065
  3. AMIODARONE [Suspect]
     Active Substance: AMIODARONE
     Indication: PROPHYLAXIS
     Dosage: UNK
     Route: 042
  4. LANDIOLOL [Suspect]
     Active Substance: LANDIOLOL
     Indication: PROPHYLAXIS
     Dosage: 5.3 MICROGRAM/KILOGRAM PER MIN
     Route: 042
  5. AMIODARONE [Suspect]
     Active Substance: AMIODARONE
     Indication: VENTRICULAR TACHYCARDIA
     Dosage: 200 MILLIGRAM, UNK
     Route: 065
  6. CARVEDILOL. [Suspect]
     Active Substance: CARVEDILOL
     Indication: VENTRICULAR TACHYCARDIA
     Dosage: 25 MILLIGRAM, UNK
     Route: 065
  7. WARFARIN [Suspect]
     Active Substance: WARFARIN
     Indication: VENTRICULAR TACHYCARDIA
     Dosage: UNK
     Route: 065
  8. ASPIRIN. [Suspect]
     Active Substance: ASPIRIN
     Indication: VENTRICULAR TACHYCARDIA
     Dosage: UNK
     Route: 065

REACTIONS (3)
  - Disease recurrence [Unknown]
  - Weight increased [Unknown]
  - Drug ineffective [Unknown]
